FAERS Safety Report 5041054-1 (Version None)
Quarter: 2006Q2

REPORT INFORMATION
  Report Type: 
  Country: None (occurrence: None)
  Receive Date: 20060630
  Receipt Date: 20060630
  Transmission Date: 20061013
  Serious: Yes (Hospitalization)
  Sender: FDA-Public Use
  Company Number: None

PATIENT
  Sex: Female
  Weight: 58.9676 kg

DRUGS (12)
  1. VENLAFAXINE HCL [Suspect]
     Indication: DEPRESSION
     Dosage: 112.5 MG BID PO
     Route: 048
     Dates: start: 20060412, end: 20060623
  2. VENLAFAXINE HCL [Suspect]
     Indication: POST-TRAUMATIC STRESS DISORDER
     Dosage: 112.5 MG BID PO
     Route: 048
     Dates: start: 20060412, end: 20060623
  3. ACETAMINOPHEN [Suspect]
     Indication: PAIN
     Dosage: 1000 MG 3-4 TIMES DAILY PO
     Route: 048
     Dates: start: 20060617, end: 20060623
  4. CALCUIM [Concomitant]
  5. DOCUSATE SODIUM [Concomitant]
  6. CLIMARA [Concomitant]
  7. DIAZEPAM [Concomitant]
  8. LEVOTHROXINE [Concomitant]
  9. MIRTAZAPINE [Concomitant]
  10. OMEPRAZOLE [Concomitant]
  11. PRENATAL VITAMINS [Concomitant]
  12. METHADONE HCL [Concomitant]

REACTIONS (5)
  - DEPRESSIVE SYMPTOM [None]
  - HALLUCINATION, AUDITORY [None]
  - HALLUCINATION, VISUAL [None]
  - HEPATIC ENZYME INCREASED [None]
  - SUICIDAL IDEATION [None]
